FAERS Safety Report 8483536 (Version 3)
Quarter: 2012Q4

REPORT INFORMATION
  Report Type: 
  Country: SI (occurrence: SI)
  Receive Date: 20120329
  Receipt Date: 20121116
  Transmission Date: 20130627
  Serious: Yes (Congenital Anomaly, Other)
  Sender: FDA-Public Use
  Company Number: SI-GLAXOSMITHKLINE-B0791546A

PATIENT
  Age: 6 Month
  Sex: Male

DRUGS (2)
  1. LAMICTAL [Suspect]
     Indication: IMPULSIVE BEHAVIOUR
     Dosage: 75MG per day
     Route: 064
     Dates: start: 20110830
  2. CIPRALEX [Suspect]
     Indication: SOCIAL PHOBIA
     Dosage: 15MG per day
     Route: 064
     Dates: start: 20101124

REACTIONS (3)
  - Cleft lip [Unknown]
  - Ultrasound scan abnormal [Unknown]
  - Foetal exposure during pregnancy [Unknown]
